FAERS Safety Report 13017646 (Version 3)
Quarter: 2016Q4

REPORT INFORMATION
  Report Type: Spontaneous
  Country: US (occurrence: US)
  Receive Date: 20161212
  Receipt Date: 20161228
  Transmission Date: 20170207
  Serious: No
  Sender: FDA-Public Use
  Company Number: US-PFIZER INC-2016559118

PATIENT
  Age: 66 Year
  Sex: Male

DRUGS (19)
  1. NEXIUM [Concomitant]
     Active Substance: ESOMEPRAZOLE MAGNESIUM
     Dosage: 40 MG, 1X/DAY (1 PACKET MIXED WITH 15 ML OF WATER)
     Route: 048
     Dates: start: 20160831
  2. ATORVASTATIN CALCIUM. [Concomitant]
     Active Substance: ATORVASTATIN CALCIUM
     Dosage: 40 MG, 1X/DAY (QHS)
     Route: 048
     Dates: start: 20160617
  3. COENZYME Q10 [Concomitant]
     Active Substance: UBIDECARENONE
     Dosage: 200 MG, 1X/DAY (1 CAPSULE WITH A MEAL)
     Route: 048
     Dates: start: 20160617
  4. VITAMIN C [Concomitant]
     Active Substance: ASCORBIC ACID
     Dosage: UNK
     Route: 048
  5. LYRICA [Suspect]
     Active Substance: PREGABALIN
     Indication: NECK PAIN
  6. LORTAB [Concomitant]
     Active Substance: ACETAMINOPHEN\HYDROCODONE BITARTRATE
     Indication: MUSCULOSKELETAL PAIN
     Dosage: 1 DF, AS NEEDED [HYDROCODONE BITARTRATE 10MG]/[PARACETAMOL 325MG] 1 TABLET, AS NEEDED Q8H PRN
     Route: 048
  7. DIAZEPAM. [Concomitant]
     Active Substance: DIAZEPAM
     Indication: ANXIETY
     Dosage: 5 MG, AS NEEDED (1 TABLET AS NEEDED TWICE A DAY)
     Route: 048
  8. OMEPRAZOLE. [Concomitant]
     Active Substance: OMEPRAZOLE
     Dosage: 40 MG, 1X/DAY
     Route: 048
  9. GARLIC. [Concomitant]
     Active Substance: GARLIC
     Dosage: UNK
     Route: 048
  10. LYRICA [Suspect]
     Active Substance: PREGABALIN
     Indication: NERVE COMPRESSION
     Dosage: 75 MG, 2X/DAY
     Route: 048
  11. LASIX [Concomitant]
     Active Substance: FUROSEMIDE
     Dosage: 40 MG, 2X/DAY
     Route: 048
     Dates: start: 20160527
  12. PREDNISONE. [Concomitant]
     Active Substance: PREDNISONE
     Dosage: 5 MG, 1X/DAY
     Route: 048
  13. OSTEO BI-FLEX [Concomitant]
     Active Substance: CHONDROITIN SULFATE A\GLUCOSAMINE
     Dosage: UNK ADV DOUBLE ST TABLET
     Route: 048
  14. COOL + HEAT [Concomitant]
     Dosage: UNK
  15. MAGNESIUM [Concomitant]
     Active Substance: MAGNESIUM
     Dosage: 300 MG, 1X/DAY (1 CAPSULE WITH A MEAL)
     Route: 048
  16. LYRICA [Suspect]
     Active Substance: PREGABALIN
     Indication: MUSCULOSKELETAL PAIN
  17. DICLOFENAC SODIUM. [Concomitant]
     Active Substance: DICLOFENAC SODIUM
     Dosage: 1 DF, AS NEEDED (1 APPLICATION TO AFFECTED AREA TWICE A DAY AS NEEDED)
     Route: 062
     Dates: start: 20160907
  18. BUSPIRONE HCL [Concomitant]
     Active Substance: BUSPIRONE HYDROCHLORIDE
     Dosage: 5 MG, 3X/DAY
     Route: 048
  19. AMOXICILLIN. [Concomitant]
     Active Substance: AMOXICILLIN
     Dosage: UNK UNK, 2X/DAY (EVERY 12 HRS)
     Route: 048

REACTIONS (14)
  - Generalised anxiety disorder [Unknown]
  - Rash [Unknown]
  - Arthralgia [Unknown]
  - Joint swelling [Not Recovered/Not Resolved]
  - Weight increased [Unknown]
  - Intervertebral disc degeneration [Unknown]
  - Skin lesion [Unknown]
  - Musculoskeletal stiffness [Unknown]
  - Drug effect incomplete [Unknown]
  - Intentional product use issue [Unknown]
  - Pain in extremity [Unknown]
  - Pain [Unknown]
  - Peripheral swelling [Not Recovered/Not Resolved]
  - Fall [Unknown]
